FAERS Safety Report 25891534 (Version 1)
Quarter: 2025Q4

REPORT INFORMATION
  Report Type: Spontaneous
  Country: US (occurrence: None)
  Receive Date: 20251007
  Receipt Date: 20251007
  Transmission Date: 20260118
  Serious: Yes (Other)
  Sender: FDA-CTU
  Company Number: None

PATIENT
  Age: 86 Year
  Sex: Female
  Weight: 62.55 kg

DRUGS (9)
  1. AMLODIPINE BESYLATE [Suspect]
     Active Substance: AMLODIPINE BESYLATE
     Indication: Hypertension
     Dosage: 1 TABLET DAILY ORAL
     Route: 048
     Dates: start: 20250709, end: 20250925
  2. Losartan potassium 1 tab 100mg [Concomitant]
  3. bumetanide 1 tab 2 mg [Concomitant]
  4. omeprazole 1 cap 20mg [Concomitant]
  5. calcium 600mg, 2 cap [Concomitant]
  6. magnesium citrate 250 mg, 2 cap [Concomitant]
  7. turmeric 1500mg 1 cap [Concomitant]
  8. 2 aspirin 325 mg, 2tablets [Concomitant]
  9. MULTI-VITAMIN [Suspect]
     Active Substance: .ALPHA.-TOCOPHEROL ACETATE, DL-\ASCORBIC ACID\CYANOCOBALAMIN\FLUORIDE ION\FOLIC ACID\NIACIN\PYRIDOXI

REACTIONS (4)
  - Anal incontinence [None]
  - Irritable bowel syndrome [None]
  - Food intolerance [None]
  - Therapy cessation [None]

NARRATIVE: CASE EVENT DATE: 20250803
